FAERS Safety Report 26116899 (Version 2)
Quarter: 2025Q4

REPORT INFORMATION
  Report Type: Spontaneous
  Country: US (occurrence: US)
  Receive Date: 20251203
  Receipt Date: 20251205
  Transmission Date: 20260118
  Serious: No
  Sender: Haleon PLC
  Company Number: US-HALEON-2277224

PATIENT

DRUGS (1)
  1. ABREVA [Suspect]
     Active Substance: DOCOSANOL
     Indication: Oral herpes

REACTIONS (1)
  - Therapeutic product effect incomplete [Unknown]
